FAERS Safety Report 15468119 (Version 2)
Quarter: 2018Q4

REPORT INFORMATION
  Report Type: Report from Study
  Country: US (occurrence: US)
  Receive Date: 20181005
  Receipt Date: 20181104
  Transmission Date: 20190204
  Serious: Yes (Other)
  Sender: FDA-Public Use
  Company Number: PHEH2018US041600

PATIENT
  Age: 64 Year
  Sex: Female
  Weight: 78.92 kg

DRUGS (2)
  1. GLATOPA [Suspect]
     Active Substance: GLATIRAMER ACETATE
     Indication: MULTIPLE SCLEROSIS
     Dosage: 40 MG, 3 TIMES A WEEK ROTATES SITES
     Route: 058
     Dates: start: 20180701
  2. GLATOPA [Suspect]
     Active Substance: GLATIRAMER ACETATE
     Dosage: 40 MG, UNK
     Route: 058
     Dates: start: 20180901, end: 20180920

REACTIONS (5)
  - Dizziness [Recovered/Resolved]
  - Fatigue [Unknown]
  - Eye disorder [Unknown]
  - Ataxia [Recovered/Resolved]
  - Somnolence [Unknown]

NARRATIVE: CASE EVENT DATE: 20180918
